FAERS Safety Report 21999461 (Version 1)
Quarter: 2023Q1

REPORT INFORMATION
  Report Type: Spontaneous
  Country: GB (occurrence: GB)
  Receive Date: 20230216
  Receipt Date: 20230216
  Transmission Date: 20230418
  Serious: Yes (Hospitalization, Other)
  Sender: FDA-Public Use
  Company Number: GB-AMGEN-GBRSP2023027126

PATIENT
  Age: 34 Year
  Sex: Male

DRUGS (2)
  1. ADALIMUMAB [Suspect]
     Active Substance: ADALIMUMAB
     Indication: Axial spondyloarthritis
     Dosage: UNK
     Route: 065
  2. NAPROXEN [Concomitant]
     Active Substance: NAPROXEN
     Indication: Axial spondyloarthritis
     Dosage: UNK

REACTIONS (7)
  - Crohn^s disease [Recovering/Resolving]
  - Therapy non-responder [Unknown]
  - Drug specific antibody present [Unknown]
  - Sacral pain [Recovering/Resolving]
  - Neck pain [Recovering/Resolving]
  - Joint stiffness [Recovering/Resolving]
  - Arthralgia [Recovering/Resolving]
